FAERS Safety Report 11164884 (Version 1)
Quarter: 2015Q2

REPORT INFORMATION
  Report Type: Spontaneous
  Country: US (occurrence: US)
  Receive Date: 20150604
  Receipt Date: 20150604
  Transmission Date: 20150821
  Serious: No
  Sender: FDA-Public Use
  Company Number: US-ELI_LILLY_AND_COMPANY-US201505008956

PATIENT
  Sex: Male

DRUGS (2)
  1. HUMATROPE [Suspect]
     Active Substance: SOMATROPIN
     Indication: GROWTH HORMONE DEFICIENCY
     Dosage: 0.85 MG, QD
     Route: 058
     Dates: start: 201501
  2. HUMATROPE [Suspect]
     Active Substance: SOMATROPIN
     Dosage: 0.85 MG, QD
     Route: 058

REACTIONS (1)
  - Incorrect dose administered [Recovered/Resolved]
